FAERS Safety Report 6192402-0 (Version None)
Quarter: 2009Q2

REPORT INFORMATION
  Report Type: 
  Country: None (occurrence: None)
  Receive Date: 20090513
  Receipt Date: 20090513
  Transmission Date: 20091009
  Serious: Yes (Life-Threatening, Disabling)
  Sender: FDA-Public Use
  Company Number: None

PATIENT
  Sex: Female
  Weight: 86.1834 kg

DRUGS (6)
  1. PROVIGIL [Suspect]
     Indication: ATTENTION DEFICIT/HYPERACTIVITY DISORDER
     Dosage: 100 - 200 MG DAILY PILL
     Dates: start: 20050501
  2. PROVIGIL [Suspect]
     Indication: FIBROMYALGIA
     Dosage: 100 - 200 MG DAILY PILL
     Dates: start: 20050501
  3. PROVIGIL [Suspect]
     Indication: SOMNOLENCE
     Dosage: 100 - 200 MG DAILY PILL
     Dates: start: 20050501
  4. PROVIGIL [Suspect]
     Indication: ATTENTION DEFICIT/HYPERACTIVITY DISORDER
     Dosage: 100 - 200 MG DAILY PILL
     Dates: start: 20080101
  5. PROVIGIL [Suspect]
     Indication: FIBROMYALGIA
     Dosage: 100 - 200 MG DAILY PILL
     Dates: start: 20080101
  6. PROVIGIL [Suspect]
     Indication: SOMNOLENCE
     Dosage: 100 - 200 MG DAILY PILL
     Dates: start: 20080101

REACTIONS (6)
  - CARDIOVASCULAR DISORDER [None]
  - HAEMATOCHEZIA [None]
  - MAJOR DEPRESSION [None]
  - MENTAL DISORDER [None]
  - PAIN [None]
  - SKIN DISORDER [None]
